FAERS Safety Report 15057624 (Version 6)
Quarter: 2018Q4

REPORT INFORMATION
  Report Type: Report from Study
  Country: JP (occurrence: JP)
  Receive Date: 20180625
  Receipt Date: 20181011
  Transmission Date: 20190204
  Serious: Yes (Death)
  Sender: FDA-Public Use
  Company Number: JP-BEH-2018092083

PATIENT
  Age: 80 Year
  Sex: Female
  Weight: 43 kg

DRUGS (14)
  1. WARFARIN [Suspect]
     Active Substance: WARFARIN
     Dosage: 4.5 MG, UNK
     Route: 048
     Dates: start: 20180402, end: 20180413
  2. WARFARIN [Suspect]
     Active Substance: WARFARIN
     Indication: CARDIAC VALVE DISEASE
     Dosage: 3 MG, UNK
     Route: 048
     Dates: start: 20180328
  3. THYRADIN [Suspect]
     Active Substance: LEVOTHYROXINE
     Route: 048
  4. ALENDRONATE SODIUM. [Concomitant]
     Active Substance: ALENDRONATE SODIUM
     Route: 048
  5. BERIPLEX P/N [Suspect]
     Active Substance: COAGULATION FACTOR IX HUMAN\COAGULATION FACTOR VII HUMAN\COAGULATION FACTOR X HUMAN\PROTEIN C\PROTEIN S HUMAN\PROTHROMBIN
     Indication: HAEMORRHAGE
     Dosage: 1000 IU, UNK
     Route: 042
     Dates: start: 20180320
  6. SPIRONOLACTONE. [Suspect]
     Active Substance: SPIRONOLACTONE
     Route: 048
  7. LANSOPRAZOLE. [Suspect]
     Active Substance: LANSOPRAZOLE
     Route: 048
  8. WARFARIN [Suspect]
     Active Substance: WARFARIN
     Dosage: 4 MG, UNK
     Route: 048
     Dates: start: 20180331
  9. FUROSEMIDE. [Suspect]
     Active Substance: FUROSEMIDE
     Route: 048
  10. ARTIST [Suspect]
     Active Substance: CARVEDILOL
     Route: 048
  11. EDIROL [Concomitant]
     Active Substance: ELDECALCITOL
     Route: 048
  12. WARFARIN [Suspect]
     Active Substance: WARFARIN
     Indication: HEART VALVE REPLACEMENT
     Dosage: 3.5 MG, UNK
     Route: 048
     Dates: end: 20180319
  13. FEBURIC [Suspect]
     Active Substance: FEBUXOSTAT
     Route: 048
  14. KAYTWO N [Concomitant]
     Active Substance: MENATETRENONE
     Indication: PROCOAGULANT THERAPY
     Dosage: 20 MG, UNK
     Route: 065
     Dates: start: 20180320, end: 20180321

REACTIONS (2)
  - Depressed level of consciousness [Fatal]
  - Embolic stroke [Fatal]

NARRATIVE: CASE EVENT DATE: 20180401
